FAERS Safety Report 13799688 (Version 1)
Quarter: 2017Q3

REPORT INFORMATION
  Report Type: Spontaneous
  Country: US (occurrence: US)
  Receive Date: 20170727
  Receipt Date: 20170727
  Transmission Date: 20171127
  Serious: Yes (Death)
  Sender: FDA-Public Use
  Company Number: None

PATIENT
  Age: 77 Year
  Sex: Male

DRUGS (5)
  1. AVASTIN [Suspect]
     Active Substance: BEVACIZUMAB
     Indication: LUNG NEOPLASM MALIGNANT
     Dosage: ?          OTHER FREQUENCY:EVERY 2 WEEKS;?
     Route: 042
     Dates: start: 20170331, end: 20170726
  2. METHOTREXATE. [Concomitant]
     Active Substance: METHOTREXATE
  3. NEUPOGEN [Concomitant]
     Active Substance: FILGRASTIM
  4. DOCETAXEL. [Suspect]
     Active Substance: DOCETAXEL
     Indication: LUNG NEOPLASM MALIGNANT
     Dosage: ?          OTHER FREQUENCY:EVERY 2 WEEKS;?
     Route: 042
     Dates: start: 20170331, end: 20170726
  5. KEYTRUDA [Concomitant]
     Active Substance: PEMBROLIZUMAB

REACTIONS (1)
  - Death [None]

NARRATIVE: CASE EVENT DATE: 20170726
